FAERS Safety Report 4285268-7 (Version None)
Quarter: 2004Q1

REPORT INFORMATION
  Report Type: 
  Country: None (occurrence: None)
  Receive Date: 20040203
  Receipt Date: 20040203
  Transmission Date: 20041129
  Serious: Yes (Hospitalization)
  Sender: FDA-Public Use
  Company Number: None

PATIENT
  Age: 42 Year
  Sex: Male

DRUGS (4)
  1. VICODIN [Suspect]
     Indication: PAIN IN EXTREMITY
     Dosage: 45 GM APAP/450 MG HYDROCODONE OTO
  2. VICODIN [Suspect]
     Indication: POST PROCEDURAL PAIN
     Dosage: 45 GM APAP/450 MG HYDROCODONE OTO
  3. BUPIOPION [Concomitant]
  4. CITALOPRAM [Concomitant]

REACTIONS (7)
  - ALANINE AMINOTRANSFERASE INCREASED [None]
  - ASPARTATE AMINOTRANSFERASE INCREASED [None]
  - BLOOD BILIRUBIN INCREASED [None]
  - COMA [None]
  - DYSARTHRIA [None]
  - INTENTIONAL OVERDOSE [None]
  - MENTAL STATUS CHANGES [None]
